FAERS Safety Report 18039143 (Version 1)
Quarter: 2020Q3

REPORT INFORMATION
  Report Type: Spontaneous
  Country: NO (occurrence: NO)
  Receive Date: 20200718
  Receipt Date: 20200718
  Transmission Date: 20201103
  Serious: Yes (Life-Threatening, Hospitalization)
  Sender: FDA-Public Use
  Company Number: NO-AMGEN-NORSP2020116236

PATIENT
  Age: 49 Year
  Sex: Female

DRUGS (4)
  1. VENTOLINE [SALBUTAMOL] [Concomitant]
     Active Substance: ALBUTEROL SULFATE
     Indication: ASTHMA
     Dosage: 0.1 MG, PRN
     Route: 055
  2. INUXAIR [Concomitant]
     Indication: ASTHMA
     Dosage: (BECLOMETASONE 100 UG, FORMOTEROL 6 UG) MORNING AND EVENING
     Route: 055
  3. AERIUS (DESLORATADINE) [Concomitant]
     Active Substance: DESLORATADINE
     Indication: HYPERSENSITIVITY
     Dosage: 5 MG, QD
     Route: 048
  4. AIMOVIG [Suspect]
     Active Substance: ERENUMAB-AOOE
     Indication: MIGRAINE
     Dosage: 140 MG, Q4W
     Route: 058
     Dates: start: 20200623, end: 20200623

REACTIONS (1)
  - Anaphylactic shock [Recovered/Resolved with Sequelae]

NARRATIVE: CASE EVENT DATE: 20200623
